FAERS Safety Report 8255182-0 (Version None)
Quarter: 2012Q1

REPORT INFORMATION
  Report Type: 
  Country: None (occurrence: None)
  Receive Date: 20120330
  Receipt Date: 20120321
  Transmission Date: 20120608
  Serious: Yes (Life-Threatening, Hospitalization, Other)
  Sender: FDA-Public Use
  Company Number: 2012MA003805

PATIENT
  Age: 40 Year
  Sex: Male
  Weight: 70.489 kg

DRUGS (3)
  1. OXYMORPHONE HYDROCHLORIDE [Suspect]
     Dosage: 30 MG, PO
     Route: 048
  2. OXYMORPHONE HYDROCHLORIDE [Suspect]
     Dosage: 30 MG, X1, PO
     Route: 048
     Dates: start: 20120315, end: 20120315
  3. NALTREXONE HYDROCHLORIDE [Concomitant]

REACTIONS (6)
  - RESPIRATORY ARREST [None]
  - PAIN [None]
  - MYOCARDIAL INFARCTION [None]
  - GUN SHOT WOUND [None]
  - HAEMORRHAGE [None]
  - CARDIAC ARREST [None]
